FAERS Safety Report 4510598-0 (Version None)
Quarter: 2004Q4

REPORT INFORMATION
  Report Type: 
  Country: None (occurrence: None)
  Receive Date: 20041119
  Receipt Date: 20041109
  Transmission Date: 20050328
  Serious: Yes (Hospitalization, Other)
  Sender: FDA-Public Use
  Company Number: HQWYE343410NOV04

PATIENT
  Age: 19 Year
  Sex: Female

DRUGS (4)
  1. ADVIL [Suspect]
     Dosage: ONE TABLET, ORAL
     Route: 048
     Dates: start: 20040726, end: 20040726
  2. ACETAMINOPHEN [Suspect]
     Dosage: 11 TABLETS OF 500 MG
     Dates: start: 20040726
  3. ACETAMINOPHEN [Suspect]
     Dosage: 3 TABLETS OF 1 G
  4. PROPOFAN (CAFEINE/CARBASALATE CALCIUM/CHLOROPHENAMINE MALEATE/EXTROPRO [Concomitant]

REACTIONS (4)
  - DRUG LEVEL ABOVE THERAPEUTIC [None]
  - HYPERCHLORAEMIA [None]
  - HYPERGLYCAEMIA [None]
  - HYPOKALAEMIA [None]
